FAERS Safety Report 14119167 (Version 1)
Quarter: 2017Q4

REPORT INFORMATION
  Report Type: Spontaneous
  Country: US (occurrence: US)
  Receive Date: 20171024
  Receipt Date: 20171024
  Transmission Date: 20180321
  Serious: Yes (Hospitalization, Other)
  Sender: FDA-Public Use
  Company Number: US-ZYDUS-017077

PATIENT
  Age: 28 Year
  Sex: Male

DRUGS (12)
  1. SILDENAFIL. [Concomitant]
     Active Substance: SILDENAFIL
     Indication: PRODUCT USED FOR UNKNOWN INDICATION
     Route: 048
  2. BUPROPION/BUPROPION HYDROCHLORIDE [Concomitant]
     Indication: PRODUCT USED FOR UNKNOWN INDICATION
     Dosage: BUPROPRION XL 150 MG ORALLY DAILY
     Route: 048
  3. GLUTAMIC ACID [Concomitant]
     Active Substance: GLUTAMIC ACID
     Indication: SUPPLEMENTATION THERAPY
     Route: 065
  4. SERTRALINE [Suspect]
     Active Substance: SERTRALINE HYDROCHLORIDE
     Indication: PRODUCT USED FOR UNKNOWN INDICATION
     Route: 048
  5. 5-HYDROXYTRYPTOPHAN [Interacting]
     Active Substance: OXITRIPTAN
     Indication: SUPPLEMENTATION THERAPY
     Route: 065
  6. HYDROXYZINE [Concomitant]
     Active Substance: HYDROXYZINE HYDROCHLORIDE
     Indication: PRODUCT USED FOR UNKNOWN INDICATION
     Route: 048
  7. VALPROIC ACID. [Concomitant]
     Active Substance: VALPROIC ACID
     Indication: PRODUCT USED FOR UNKNOWN INDICATION
     Route: 048
  8. MALIC ACID [Concomitant]
     Active Substance: MALIC ACID
     Indication: SUPPLEMENTATION THERAPY
     Route: 065
  9. BUPROPION/BUPROPION HYDROCHLORIDE [Concomitant]
     Indication: PRODUCT USED FOR UNKNOWN INDICATION
     Route: 048
  10. PRAZOSIN. [Concomitant]
     Active Substance: PRAZOSIN
     Indication: PRODUCT USED FOR UNKNOWN INDICATION
     Route: 048
  11. CYCLOBENZAPRINE. [Concomitant]
     Active Substance: CYCLOBENZAPRINE
     Indication: PRODUCT USED FOR UNKNOWN INDICATION
     Route: 048
  12. LINOLEIC ACID [Concomitant]
     Active Substance: LINOLEIC ACID
     Indication: SUPPLEMENTATION THERAPY
     Route: 065

REACTIONS (21)
  - Rhabdomyolysis [Unknown]
  - Musculoskeletal stiffness [Unknown]
  - Treatment noncompliance [Unknown]
  - Seizure [Unknown]
  - Serotonin syndrome [Unknown]
  - Emotional distress [Unknown]
  - Muscle spasms [Unknown]
  - Pain in extremity [Unknown]
  - Tenderness [Unknown]
  - Erythema [Unknown]
  - Hypoxia [Unknown]
  - Compartment syndrome [Unknown]
  - Peripheral swelling [Unknown]
  - Agitation [Unknown]
  - Clonus [Unknown]
  - Dyskinesia [Unknown]
  - Cyanosis [Unknown]
  - Drug interaction [Unknown]
  - Condition aggravated [Unknown]
  - Hyperthermia [Unknown]
  - Hypoaesthesia [Unknown]
